FAERS Safety Report 6504774-5 (Version None)
Quarter: 2009Q4

REPORT INFORMATION
  Report Type: 
  Country: None (occurrence: None)
  Receive Date: 20091216
  Receipt Date: 20091203
  Transmission Date: 20100525
  Serious: Yes (Death, Other)
  Sender: FDA-Public Use
  Company Number: 2009-03983

PATIENT
  Sex: Female

DRUGS (1)
  1. VELCADE [Suspect]
     Indication: MULTIPLE MYELOMA
     Dosage: INTRAVENOUS
     Route: 042
     Dates: start: 20090601, end: 20090901

REACTIONS (4)
  - DISEASE PROGRESSION [None]
  - KERATITIS [None]
  - MULTIPLE MYELOMA [None]
  - TOXIC NEUROPATHY [None]
